FAERS Safety Report 18172426 (Version 2)
Quarter: 2020Q3

REPORT INFORMATION
  Report Type: Spontaneous
  Country: US (occurrence: US)
  Receive Date: 20200820
  Receipt Date: 20200928
  Transmission Date: 20201103
  Serious: No
  Sender: FDA-Public Use
  Company Number: US-GILEAD-2020-0490168

PATIENT
  Sex: Female
  Weight: 99.77 kg

DRUGS (26)
  1. COMBIVIR [Concomitant]
     Active Substance: LAMIVUDINE\ZIDOVUDINE
  2. FAMCICLOVIR. [Concomitant]
     Active Substance: FAMCICLOVIR
  3. METHYLPREDNISOLONE. [Concomitant]
     Active Substance: METHYLPREDNISOLONE
  4. TRAZODONE [Concomitant]
     Active Substance: TRAZODONE HYDROCHLORIDE
  5. CYCLOBENZAPRINE. [Concomitant]
     Active Substance: CYCLOBENZAPRINE
  6. GUAIFENESIN. [Concomitant]
     Active Substance: GUAIFENESIN
  7. LAMIVUDINE. [Concomitant]
     Active Substance: LAMIVUDINE
  8. ATRIPLA [Suspect]
     Active Substance: EFAVIRENZ\EMTRICITABINE\TENOFOVIR DISOPROXIL FUMARATE
     Indication: HIV INFECTION
     Dosage: 200 MG/ 300 MG
     Route: 048
     Dates: start: 2001
  9. VIREAD [Suspect]
     Active Substance: TENOFOVIR DISOPROXIL FUMARATE
     Dosage: UNK
     Route: 065
     Dates: start: 200505, end: 200707
  10. ATOVAQUONE. [Concomitant]
     Active Substance: ATOVAQUONE
  11. RANITIDINE. [Concomitant]
     Active Substance: RANITIDINE
  12. ODEFSEY [Concomitant]
     Active Substance: EMTRICITABINE\RILPIVIRINE HYDROCHLORIDE\TENOFOVIR ALAFENAMIDE FUMARATE
  13. SUSTIVA [Concomitant]
     Active Substance: EFAVIRENZ
  14. BETAMETHASONE. [Concomitant]
     Active Substance: BETAMETHASONE
  15. PRAVASTATIN. [Concomitant]
     Active Substance: PRAVASTATIN
  16. STAVUDINE. [Concomitant]
     Active Substance: STAVUDINE
  17. TRAMADOL. [Concomitant]
     Active Substance: TRAMADOL
  18. ATRIPLA [Suspect]
     Active Substance: EFAVIRENZ\EMTRICITABINE\TENOFOVIR DISOPROXIL FUMARATE
     Dosage: UNK
     Route: 065
     Dates: start: 200701, end: 201705
  19. VIREAD [Suspect]
     Active Substance: TENOFOVIR DISOPROXIL FUMARATE
     Indication: HIV INFECTION
     Dosage: 300 MG
     Route: 048
     Dates: start: 2001
  20. ETODOLAC. [Concomitant]
     Active Substance: ETODOLAC
  21. IBUPROFEN. [Concomitant]
     Active Substance: IBUPROFEN
  22. PSEUDOEPHEDRINE. [Concomitant]
     Active Substance: PSEUDOEPHEDRINE HYDROCHLORIDE
  23. EPIVIR [Concomitant]
     Active Substance: LAMIVUDINE
  24. BUPROPION. [Concomitant]
     Active Substance: BUPROPION
  25. EFAVIRENZ. [Concomitant]
     Active Substance: EFAVIRENZ
  26. GABAPENTIN. [Concomitant]
     Active Substance: GABAPENTIN

REACTIONS (6)
  - Anxiety [Not Recovered/Not Resolved]
  - Injury [Unknown]
  - Bone density decreased [Unknown]
  - Osteopenia [Not Recovered/Not Resolved]
  - Pain [Not Recovered/Not Resolved]
  - Anhedonia [Not Recovered/Not Resolved]

NARRATIVE: CASE EVENT DATE: 200808
